FAERS Safety Report 10517314 (Version 3)
Quarter: 2015Q1

REPORT INFORMATION
  Report Type: Spontaneous
  Country: US (occurrence: US)
  Receive Date: 20141014
  Receipt Date: 20150304
  Transmission Date: 20150720
  Serious: Yes (Other)
  Sender: FDA-Public Use
  Company Number: US-GILEAD-2014-0118142

PATIENT
  Age: 55 Year
  Sex: Male
  Weight: 77.9 kg

DRUGS (4)
  1. OLYSIO [Concomitant]
     Active Substance: SIMEPREVIR
     Dosage: 150 MG, QD
     Route: 048
     Dates: start: 20140715, end: 201410
  2. LORAZEPAM. [Concomitant]
     Active Substance: LORAZEPAM
  3. ESCITALOPRAM OXALATE. [Concomitant]
     Active Substance: ESCITALOPRAM OXALATE
     Dosage: UNK
     Route: 065
  4. SOVALDI [Suspect]
     Active Substance: SOFOSBUVIR
     Indication: HEPATITIS C
     Dosage: 400 MG, QD
     Route: 065
     Dates: start: 20140622

REACTIONS (11)
  - Emotional disorder [Recovered/Resolved]
  - Anxiety [Recovered/Resolved]
  - Panic attack [Recovered/Resolved]
  - Screaming [Recovered/Resolved]
  - Off label use [Not Recovered/Not Resolved]
  - Throat irritation [Not Recovered/Not Resolved]
  - Cough [Not Recovered/Not Resolved]
  - Upper-airway cough syndrome [Not Recovered/Not Resolved]
  - Headache [Recovered/Resolved]
  - Dysphonia [Not Recovered/Not Resolved]
  - Pain [Recovered/Resolved]

NARRATIVE: CASE EVENT DATE: 2014
